FAERS Safety Report 16710546 (Version 1)
Quarter: 2019Q3

REPORT INFORMATION
  Report Type: Spontaneous
  Country: US (occurrence: US)
  Receive Date: 20190816
  Receipt Date: 20190816
  Transmission Date: 20191004
  Serious: No
  Sender: FDA-Public Use
  Company Number: US-009507513-1908USA006393

PATIENT
  Age: 45 Year
  Sex: Female

DRUGS (1)
  1. STEGLATRO [Suspect]
     Active Substance: ERTUGLIFLOZIN PIDOLATE
     Indication: TYPE 2 DIABETES MELLITUS
     Dosage: 5 MILLIGRAM, DAILY
     Route: 048
     Dates: start: 201905, end: 201908

REACTIONS (3)
  - Muscle spasms [Unknown]
  - False negative investigation result [Unknown]
  - Pollakiuria [Unknown]

NARRATIVE: CASE EVENT DATE: 201907
